FAERS Safety Report 13259579 (Version 1)
Quarter: 2017Q1

REPORT INFORMATION
  Report Type: Spontaneous
  Country: GR (occurrence: GR)
  Receive Date: 20170222
  Receipt Date: 20170222
  Transmission Date: 20170428
  Serious: Yes (Hospitalization, Other)
  Sender: FDA-Public Use
  Company Number: GR-SCIEGEN PHARMACEUTICALS INC-2017SCILIT00139

PATIENT

DRUGS (1)
  1. CLOPIDOGREL [Suspect]
     Active Substance: CLOPIDOGREL BISULFATE
     Indication: MYOCARDIAL ISCHAEMIA
     Dosage: UNK
     Route: 065

REACTIONS (3)
  - Subdural haematoma [Unknown]
  - Femur fracture [Unknown]
  - Fall [Unknown]
